FAERS Safety Report 26075587 (Version 1)
Quarter: 2025Q4

REPORT INFORMATION
  Report Type: Spontaneous
  Country: US (occurrence: US)
  Receive Date: 20251121
  Receipt Date: 20251121
  Transmission Date: 20260119
  Serious: Yes (Death, Other)
  Sender: AMGEN
  Company Number: US-AMGEN-USASP2025225225

PATIENT

DRUGS (2)
  1. PREDNISONE [Suspect]
     Active Substance: PREDNISONE
     Indication: Crohn^s disease
     Dosage: UNK
     Route: 065
  2. PREDNISONE [Suspect]
     Active Substance: PREDNISONE
     Indication: Colitis ulcerative

REACTIONS (7)
  - Death [Fatal]
  - Pulmonary embolism [Unknown]
  - Interstitial lung disease [Unknown]
  - Pleural disorder [Unknown]
  - Lung disorder [Unknown]
  - Emphysema [Unknown]
  - Obstructive airways disorder [Unknown]
